FAERS Safety Report 9645558 (Version 2)
Quarter: 2013Q4

REPORT INFORMATION
  Report Type: Spontaneous
  Country: US (occurrence: US)
  Receive Date: 20131025
  Receipt Date: 20131211
  Transmission Date: 20140711
  Serious: Yes (Hospitalization, Congenital Anomaly, Other)
  Sender: FDA-Public Use
  Company Number: US-PFIZER INC-2013303755

PATIENT
  Sex: Female

DRUGS (11)
  1. IBUPROFEN [Suspect]
     Indication: MENSTRUAL DISCOMFORT
     Dosage: UNK
     Route: 064
  2. ZOLOFT [Suspect]
     Indication: BIPOLAR DISORDER
     Dosage: 100 MG, 2X/DAY
     Route: 064
     Dates: start: 20050125, end: 20050425
  3. ZOLOFT [Suspect]
     Dosage: 100 MG, 2X/DAY
     Dates: start: 20051203, end: 20051203
  4. TOPAMAX [Suspect]
     Indication: BIPOLAR DISORDER
     Dosage: 100 MG, 2X/DAY
     Route: 064
     Dates: start: 2000, end: 2004
  5. TOPAMAX [Suspect]
     Dosage: 100 MG, 2X/DAY
     Route: 064
     Dates: start: 20050125, end: 20050425
  6. TOPAMAX [Suspect]
     Dosage: 100 MG, 2X/DAY
     Route: 064
     Dates: start: 20051203, end: 20051203
  7. TOPAMAX [Suspect]
     Dosage: UNK
     Dates: start: 200511, end: 200601
  8. WELLBUTRIN [Suspect]
     Indication: FOETAL EXPOSURE DURING PREGNANCY
     Dosage: UNK
     Route: 064
  9. ESTROGENS [Suspect]
     Indication: FOETAL EXPOSURE DURING PREGNANCY
     Dosage: UNK
     Route: 064
  10. PROMETRIUM [Suspect]
     Indication: HORMONE REPLACEMENT THERAPY
     Dosage: 200 MG, 1X/DAY
     Route: 064
     Dates: start: 20060119, end: 20060219
  11. MULTIVITAMINS W/MINERALS [Concomitant]
     Dosage: 1 DF, UNK
     Route: 064
     Dates: start: 20060112, end: 20060830

REACTIONS (19)
  - Maternal exposure timing unspecified [Unknown]
  - Cardiac disorder [Unknown]
  - Arnold-Chiari malformation [Unknown]
  - Nervous system disorder [Unknown]
  - Failure to thrive [Recovering/Resolving]
  - Spina bifida [Unknown]
  - Cerebellar ataxia [Recovering/Resolving]
  - Hydrocephalus [Unknown]
  - Encephalocele [Recovering/Resolving]
  - Meningomyelocele [Unknown]
  - Cytogenetic abnormality [Unknown]
  - Gastrooesophageal reflux disease [Recovered/Resolved]
  - Apnoea [Unknown]
  - Tethered cord syndrome [Recovering/Resolving]
  - Premature baby [Not Recovered/Not Resolved]
  - Renal fusion anomaly [Unknown]
  - Strabismus [Unknown]
  - Developmental delay [Unknown]
  - Cerebral ventriculogram abnormal [Unknown]
